FAERS Safety Report 15644443 (Version 1)
Quarter: 2018Q4

REPORT INFORMATION
  Report Type: Spontaneous
  Country: US (occurrence: US)
  Receive Date: 20181121
  Receipt Date: 20181121
  Transmission Date: 20190205
  Serious: Yes (Other)
  Sender: FDA-Public Use
  Company Number: None

PATIENT
  Age: 44 Year
  Sex: Male
  Weight: 123.75 kg

DRUGS (13)
  1. NINLARO [Suspect]
     Active Substance: IXAZOMIB CITRATE
     Indication: PLASMA CELL MYELOMA
     Dosage: ?          OTHER FREQUENCY:WEEKLY X3W OFF 1WK;?
     Route: 048
     Dates: start: 20180828
  2. REVLIMID [Concomitant]
     Active Substance: LENALIDOMIDE
  3. POTASSSIUM CHLORIDE ER [Concomitant]
  4. DAILY VITAMIN FORMULA + MINERALS [Concomitant]
  5. TUMERIC [Concomitant]
     Active Substance: HERBALS\TURMERIC
  6. ACYCLOVIR. [Concomitant]
     Active Substance: ACYCLOVIR
  7. MORINGA [Concomitant]
  8. VITAMIN D [Concomitant]
     Active Substance: CHOLECALCIFEROL
  9. LORATADINE. [Concomitant]
     Active Substance: LORATADINE
  10. AMITRIPTYLINE [Concomitant]
     Active Substance: AMITRIPTYLINE
  11. ONDANSETRON [Concomitant]
     Active Substance: ONDANSETRON
  12. FOLIC ACID. [Concomitant]
     Active Substance: FOLIC ACID
  13. CALCIUM-MAGNESIUM-ZINC [Concomitant]

REACTIONS (1)
  - Neuropathy peripheral [None]

NARRATIVE: CASE EVENT DATE: 20181120
